FAERS Safety Report 14289839 (Version 1)
Quarter: 2017Q4

REPORT INFORMATION
  Report Type: Spontaneous
  Country: US (occurrence: US)
  Receive Date: 20171215
  Receipt Date: 20171215
  Transmission Date: 20180321
  Serious: Yes (Hospitalization, Disabling, Other)
  Sender: FDA-Public Use
  Company Number: None

PATIENT
  Sex: Female
  Weight: 85.5 kg

DRUGS (9)
  1. TIZANADINE [Suspect]
     Active Substance: TIZANIDINE
     Indication: MUSCLE SPASMS
     Dosage: ?          QUANTITY:120 TABLET(S);?
     Route: 048
     Dates: start: 20101110, end: 20171215
  2. RESTORIL [Concomitant]
     Active Substance: TEMAZEPAM
  3. VALTREX [Concomitant]
     Active Substance: VALACYCLOVIR HYDROCHLORIDE
  4. MORPHINE [Concomitant]
     Active Substance: MORPHINE
  5. VITAMIN C [Concomitant]
     Active Substance: ASCORBIC ACID
  6. PERCOCET [Concomitant]
     Active Substance: ACETAMINOPHEN\OXYCODONE HYDROCHLORIDE
  7. LACTALOSE [Concomitant]
     Active Substance: LACTULOSE
  8. WOMEN^S MULTI VITAMIN [Concomitant]
  9. SYNTHROID [Concomitant]
     Active Substance: LEVOTHYROXINE SODIUM

REACTIONS (18)
  - Tremor [None]
  - Gait disturbance [None]
  - Sleep terror [None]
  - Insomnia [None]
  - Anxiety [None]
  - Paraesthesia [None]
  - Back pain [None]
  - Haematochezia [None]
  - Speech disorder [None]
  - Hypoaesthesia [None]
  - Breast discharge [None]
  - Dyspnoea [None]
  - Drooling [None]
  - Mental disorder [None]
  - Fall [None]
  - Abdominal pain upper [None]
  - Vomiting [None]
  - Loss of consciousness [None]

NARRATIVE: CASE EVENT DATE: 20171215
